FAERS Safety Report 7088838-6 (Version None)
Quarter: 2010Q4

REPORT INFORMATION
  Report Type: 
  Country: None (occurrence: None)
  Receive Date: 20101108
  Receipt Date: 20101029
  Transmission Date: 20110411
  Serious: Yes (Hospitalization, Other)
  Sender: FDA-Public Use
  Company Number: PHHO2010JP12476

PATIENT
  Sex: Male
  Weight: 115 kg

DRUGS (16)
  1. BLINDED ALISKIREN ALI+TAB+CF [Suspect]
     Dosage: NO TREATMENT
  2. ENALAPRIL MALEATE [Suspect]
     Dosage: NO TREATMENT
  3. BLINDED NO TREATMENT RECEIVED NOMED [Suspect]
     Dosage: NO TREATMENT
  4. COMPARATOR ENALAPRIL [Suspect]
     Indication: CARDIAC FAILURE
     Dosage: 10 MG, UNK
     Route: 048
     Dates: start: 20100220, end: 20100311
  5. COMPARATOR ENALAPRIL [Suspect]
     Dosage: 20 MG, DAILY
     Route: 048
     Dates: start: 20100312, end: 20100813
  6. COMPARATOR ENALAPRIL [Suspect]
     Dosage: 10 MG DAILY
     Route: 048
     Dates: start: 20100818
  7. ALISKIREN [Suspect]
     Indication: CARDIAC FAILURE
     Dosage: 150 MG, UNK
     Route: 048
     Dates: start: 20100410, end: 20100507
  8. ALISKIREN [Suspect]
     Dosage: 300 MG, UNK
     Route: 048
     Dates: start: 20100508, end: 20100813
  9. ALISKIREN [Suspect]
     Dosage: 150 MG DAILY
     Route: 048
     Dates: start: 20100818
  10. ARTIST [Concomitant]
     Indication: CARDIAC FAILURE CHRONIC
     Dosage: UNK
  11. DIART [Concomitant]
     Indication: CARDIAC FAILURE CHRONIC
  12. ALDACTONE [Concomitant]
     Indication: CARDIAC FAILURE CHRONIC
  13. BENZBROMARONE [Concomitant]
     Indication: HYPERURICAEMIA
  14. INDOMETHACIN SODIUM [Concomitant]
     Indication: HYPERURICAEMIA
  15. IRZAIM [Concomitant]
     Indication: HYPERURICAEMIA
  16. MUCOSTA [Concomitant]
     Indication: HYPERURICAEMIA

REACTIONS (5)
  - BLOOD GLUCOSE INCREASED [None]
  - BLOOD TRIGLYCERIDES INCREASED [None]
  - DIABETES MELLITUS [None]
  - DIABETIC KETOACIDOSIS [None]
  - GENERAL PHYSICAL HEALTH DETERIORATION [None]
